FAERS Safety Report 9822844 (Version 3)
Quarter: 2014Q1

REPORT INFORMATION
  Report Type: Spontaneous
  Country: US (occurrence: US)
  Receive Date: 20140116
  Receipt Date: 20140204
  Transmission Date: 20141002
  Serious: No
  Sender: FDA-Public Use
  Company Number: US-009507513-1310USA013279

PATIENT
  Sex: Male

DRUGS (2)
  1. ZEGERID [Suspect]
     Indication: PRODUCT USED FOR UNKNOWN INDICATION
     Dosage: UNK UNK, UNKNOWN
     Route: 048
     Dates: start: 20131014, end: 20131017
  2. ZEGERID [Suspect]
     Dosage: UNK, UNKNOWN
     Route: 048
     Dates: start: 201310

REACTIONS (5)
  - Anxiety [Unknown]
  - Dyspnoea [Not Recovered/Not Resolved]
  - Dehydration [Not Recovered/Not Resolved]
  - Mucosal dryness [Not Recovered/Not Resolved]
  - Wrong technique in drug usage process [Unknown]
